FAERS Safety Report 20192643 (Version 1)
Quarter: 2021Q4

REPORT INFORMATION
  Report Type: Spontaneous
  Country: EE (occurrence: EE)
  Receive Date: 20211216
  Receipt Date: 20211216
  Transmission Date: 20220303
  Serious: Yes (Other)
  Sender: FDA-Public Use
  Company Number: EE-BAYER-2021A259712

PATIENT
  Age: 62 Year
  Sex: Female
  Weight: 96 kg

DRUGS (3)
  1. RIVAROXABAN [Suspect]
     Active Substance: RIVAROXABAN
     Indication: Superficial vein thrombosis
     Dosage: 10 MG, TID
     Route: 065
     Dates: start: 20210511
  2. ENALAPRIL [Concomitant]
     Active Substance: ENALAPRIL
  3. ROSUVASTATIN [Concomitant]
     Active Substance: ROSUVASTATIN

REACTIONS (4)
  - Thrombosis [Unknown]
  - Pain in extremity [Unknown]
  - Product use issue [Unknown]
  - Off label use [Unknown]
